FAERS Safety Report 15640114 (Version 2)
Quarter: 2021Q4

REPORT INFORMATION
  Report Type: Spontaneous
  Country: US (occurrence: US)
  Receive Date: 20181120
  Receipt Date: 20211021
  Transmission Date: 20220303
  Serious: Yes (Disabling, Other)
  Sender: FDA-Public Use
  Company Number: US-TEVA-2018-US-976850

PATIENT
  Age: 61 Year
  Sex: Female
  Weight: 99.7 kg

DRUGS (23)
  1. DOCETAXEL [Suspect]
     Active Substance: DOCETAXEL
     Indication: Invasive ductal breast carcinoma
     Dosage: DOSAGE: 75 MG/M2, DOSE 160 MG, FREQUENCY: EVERY 3 WEEKS
     Route: 042
     Dates: start: 20140521, end: 20140521
  2. DOCETAXEL [Suspect]
     Active Substance: DOCETAXEL
     Dosage: DOSAGE: 75 MG/M2, DOSE  160 MG, FREQUENCY: EVERY 3 WEEKS
     Route: 042
     Dates: start: 20140611, end: 20140611
  3. DOCETAXEL [Suspect]
     Active Substance: DOCETAXEL
     Dosage: DOSAGE: 75 MG/M2, DOSE 160 MG, FREQUENCY: EVERY 3 WEEKS
     Route: 042
     Dates: start: 20140723, end: 20140723
  4. DOCEFREZ [Suspect]
     Active Substance: DOCETAXEL ANHYDROUS
     Indication: Invasive ductal breast carcinoma
     Dosage: DOSAGE: 75 MG/M2, DOSE 160 MG, FREQUENCY: EVERY 3 WEEKS
     Route: 042
     Dates: start: 20140813, end: 20140813
  5. DOCETAXEL [Suspect]
     Active Substance: DOCETAXEL
     Indication: Invasive ductal breast carcinoma
     Dosage: DOSAGE: 75 MG/M2, DOSE 160 MG, FREQUENCY: EVERY 3 WEEKS
     Route: 042
     Dates: start: 20140430, end: 20140430
  6. DOCETAXEL [Suspect]
     Active Substance: DOCETAXEL
     Dosage: DOSAGE: 75 MG/M2, NUMBER OF CYCLES: 06, FREQUENCY: EVERY 3 WEEKS
     Route: 042
     Dates: start: 20140702, end: 20140702
  7. PERTUZUMAB [Suspect]
     Active Substance: PERTUZUMAB
     Indication: Invasive ductal breast carcinoma
     Dosage: DOSAGE: 420 MG, NUMBER OF CYCLES: 06, FREQUENCY: EVERY 3 WEEKS
     Route: 042
     Dates: start: 20140430, end: 20140813
  8. HERCEPTIN [Suspect]
     Active Substance: TRASTUZUMAB
     Indication: Invasive ductal breast carcinoma
     Dosage: DOSAGE: 8 MG/KG, DOSE 440 MG, NUMBER OF CYCLES: 06, FREQUENCY: EVERY 3 WEEKS
     Route: 042
     Dates: start: 20140430, end: 20140813
  9. VALSARTAN [Concomitant]
     Active Substance: VALSARTAN
     Dosage: 1 TABLET ONCE A DAY
     Route: 048
     Dates: start: 2007, end: 2016
  10. MELOXICAM [Concomitant]
     Active Substance: MELOXICAM
     Route: 065
     Dates: start: 2007, end: 2014
  11. MONTELUKAST [Concomitant]
     Active Substance: MONTELUKAST SODIUM
     Dosage: ONGOING
     Dates: start: 2007
  12. PEPCID [Concomitant]
     Active Substance: FAMOTIDINE
     Route: 042
  13. REGLAN [Concomitant]
     Active Substance: METOCLOPRAMIDE HYDROCHLORIDE
     Route: 042
  14. DECADRON [Concomitant]
     Active Substance: DEXAMETHASONE
     Route: 042
     Dates: start: 20140430, end: 20140813
  15. ALOXI [Concomitant]
     Active Substance: PALONOSETRON HYDROCHLORIDE
     Route: 042
     Dates: start: 20140430, end: 20140813
  16. BENADRYL [Concomitant]
     Active Substance: DIPHENHYDRAMINE HYDROCHLORIDE
     Route: 048
     Dates: start: 20140430, end: 20140723
  17. TYLENOL [Concomitant]
     Active Substance: ACETAMINOPHEN
     Route: 048
     Dates: start: 20140430, end: 20140723
  18. AMLODIPINE [Concomitant]
     Active Substance: AMLODIPINE BESYLATE
     Dosage: 1, DAILY
     Route: 065
     Dates: start: 20140430
  19. VALSARTAN AND HYDROCHLOROTHIAZIDE [Concomitant]
     Active Substance: HYDROCHLOROTHIAZIDE\VALSARTAN
     Dosage: 320-25, 1, DAILY
     Route: 065
     Dates: start: 20140430
  20. DETROL LA [Concomitant]
     Active Substance: TOLTERODINE TARTRATE
     Dosage: 1 DAILY
     Dates: start: 20140430
  21. ATORVASTATIN [Concomitant]
     Active Substance: ATORVASTATIN
     Dosage: 1 DAILY
     Dates: start: 20140430
  22. ACETAMINOPHEN\HYDROCODONE BITARTRATE [Concomitant]
     Active Substance: ACETAMINOPHEN\HYDROCODONE BITARTRATE
     Dosage: 5/352 EVERY 8 HOURS
     Dates: start: 20140430
  23. TRAMADOL HYDROCHLORIDE [Concomitant]
     Active Substance: TRAMADOL HYDROCHLORIDE
     Dosage: TWICE DAILY
     Dates: start: 20140430

REACTIONS (14)
  - Alopecia totalis [Not Recovered/Not Resolved]
  - Madarosis [Not Recovered/Not Resolved]
  - Alopecia areata [Not Recovered/Not Resolved]
  - Neuropathy peripheral [Unknown]
  - Hair texture abnormal [Not Recovered/Not Resolved]
  - Hair colour changes [Not Recovered/Not Resolved]
  - Ejection fraction decreased [Recovered/Resolved]
  - Diarrhoea [Recovered/Resolved]
  - Lip blister [Unknown]
  - Rash [Unknown]
  - Taste disorder [Unknown]
  - Pruritus [Unknown]
  - Fatigue [Not Recovered/Not Resolved]
  - Dyspnoea exertional [Unknown]

NARRATIVE: CASE EVENT DATE: 20140101
